FAERS Safety Report 20606466 (Version 2)
Quarter: 2022Q1

REPORT INFORMATION
  Report Type: Spontaneous
  Country: US (occurrence: US)
  Receive Date: 20220317
  Receipt Date: 20220324
  Transmission Date: 20220424
  Serious: Yes (Other)
  Sender: FDA-Public Use
  Company Number: US-CHIESI-2022CHF01175

PATIENT
  Age: 24 Year
  Sex: Male
  Weight: 46 kg

DRUGS (14)
  1. FERRIPROX [Suspect]
     Active Substance: DEFERIPRONE
     Indication: Neurodegeneration with brain iron accumulation disorder
     Dosage: UNK, BID
     Route: 048
     Dates: start: 20211020
  2. FERRIPROX [Suspect]
     Active Substance: DEFERIPRONE
     Indication: Off label use
  3. FERROUS SULFATE [Concomitant]
     Active Substance: FERROUS SULFATE
     Indication: Product used for unknown indication
     Dosage: UNK
  4. VITAMIN D NOS [Concomitant]
     Active Substance: VITAMIN D NOS
     Indication: Product used for unknown indication
     Dosage: UNK
  5. DANTRIUM [Concomitant]
     Active Substance: DANTROLENE SODIUM
     Indication: Product used for unknown indication
     Dosage: UNK
  6. BACLOFEN [Concomitant]
     Active Substance: BACLOFEN
     Indication: Product used for unknown indication
     Dosage: UNK
  7. TIZANIDINE HYDROCHLORIDE [Concomitant]
     Active Substance: TIZANIDINE HYDROCHLORIDE
     Indication: Product used for unknown indication
     Dosage: UNK
  8. CLONAZEPAM [Concomitant]
     Active Substance: CLONAZEPAM
     Indication: Product used for unknown indication
     Dosage: UNK
  9. LANSOPRAZOLE [Concomitant]
     Active Substance: LANSOPRAZOLE
     Indication: Product used for unknown indication
     Dosage: UNK
  10. TRIHEXYPHENIDYL HYDROCHLORIDE [Concomitant]
     Active Substance: TRIHEXYPHENIDYL HYDROCHLORIDE
     Indication: Product used for unknown indication
     Dosage: UNK
  11. ZOLOFT [Concomitant]
     Active Substance: SERTRALINE HYDROCHLORIDE
     Indication: Product used for unknown indication
     Dosage: UNK
  12. VANCOMYCIN HYDROCHLORIDE [Concomitant]
     Active Substance: VANCOMYCIN HYDROCHLORIDE
     Indication: Product used for unknown indication
     Dosage: UNK
  13. CAYSTON [Concomitant]
     Active Substance: AZTREONAM
     Indication: Product used for unknown indication
     Dosage: UNK
  14. PHENOBARBITAL [Concomitant]
     Active Substance: PHENOBARBITAL
     Indication: Product used for unknown indication
     Dosage: UNK

REACTIONS (3)
  - Penile abscess [Recovering/Resolving]
  - Genital cyst [Recovering/Resolving]
  - Off label use [Not Recovered/Not Resolved]

NARRATIVE: CASE EVENT DATE: 20211020
